FAERS Safety Report 6199297-X (Version None)
Quarter: 2009Q2

REPORT INFORMATION
  Report Type: 
  Country: None (occurrence: None)
  Receive Date: 20090522
  Receipt Date: 20090511
  Transmission Date: 20091009
  Serious: Yes (Disabling)
  Sender: FDA-Public Use
  Company Number: GB-PFIZER INC-2009200999

PATIENT
  Age: 40 Year

DRUGS (3)
  1. SALAZOPYRIN [Suspect]
     Indication: PSORIATIC ARTHROPATHY
     Dosage: 500 MG X2, 3X/DAY
     Route: 048
     Dates: start: 20090101
  2. ACETAMINOPHEN W/ CODEINE [Concomitant]
     Indication: CONTUSION
     Dosage: UNK
     Route: 048
     Dates: start: 20090420, end: 20090430
  3. DICLOFENAC [Concomitant]
     Indication: PSORIATIC ARTHROPATHY
     Dosage: 75 MG, 3X/DAY
     Route: 048
     Dates: start: 20081110

REACTIONS (1)
  - ERECTILE DYSFUNCTION [None]
